FAERS Safety Report 9603342 (Version 4)
Quarter: 2015Q1

REPORT INFORMATION
  Report Type: Spontaneous
  Country: PT (occurrence: PT)
  Receive Date: 20131007
  Receipt Date: 20150205
  Transmission Date: 20150721
  Serious: Yes (Other)
  Sender: FDA-Public Use
  Company Number: PT-ABBVIE-13X-130-1119281-00

PATIENT
  Age: 39 Year
  Sex: Female
  Weight: 53 kg

DRUGS (18)
  1. SERTACONAZOLE [Concomitant]
     Active Substance: SERTACONAZOLE
     Route: 067
     Dates: start: 20110905, end: 20110905
  2. YASMIN [Concomitant]
     Active Substance: DROSPIRENONE\ETHINYL ESTRADIOL
     Indication: CONTRACEPTION
     Route: 048
     Dates: start: 2006, end: 20130611
  3. KLACID OD [Suspect]
     Active Substance: CLARITHROMYCIN
     Indication: UPPER RESPIRATORY TRACT INFECTION
     Route: 048
     Dates: start: 20130516, end: 20130524
  4. TAFAMIDIS MEGLUMINE [Suspect]
     Active Substance: TAFAMIDIS MEGLUMINE
     Indication: HEREDITARY NEUROPATHIC AMYLOIDOSIS
     Route: 065
     Dates: start: 20141212
  5. TAFAMIDIS MEGLUMINE [Suspect]
     Active Substance: TAFAMIDIS MEGLUMINE
     Route: 065
     Dates: start: 20070801, end: 20090130
  6. SERTACONAZOLE [Concomitant]
     Active Substance: SERTACONAZOLE
     Indication: PRODUCT USED FOR UNKNOWN INDICATION
     Route: 067
     Dates: start: 20110507, end: 20110507
  7. SECNIDAZOLE [Concomitant]
     Active Substance: SECNIDAZOLE
     Indication: PRODUCT USED FOR UNKNOWN INDICATION
     Route: 048
     Dates: start: 20110712, end: 20110712
  8. MEBENDAZOLE. [Concomitant]
     Active Substance: MEBENDAZOLE
     Indication: PRODUCT USED FOR UNKNOWN INDICATION
     Route: 048
     Dates: start: 20110905, end: 20110907
  9. TAFAMIDIS MEGLUMINE [Suspect]
     Active Substance: TAFAMIDIS MEGLUMINE
     Route: 048
     Dates: start: 20100908, end: 20130605
  10. FLUCONAZOLE. [Concomitant]
     Active Substance: FLUCONAZOLE
     Indication: PRODUCT USED FOR UNKNOWN INDICATION
     Route: 048
     Dates: start: 20110507, end: 20110507
  11. DESLORATADINE. [Concomitant]
     Active Substance: DESLORATADINE
     Dates: start: 20120324, end: 20120401
  12. DESLORATADINE. [Concomitant]
     Active Substance: DESLORATADINE
     Route: 048
     Dates: start: 20100721, end: 201008
  13. SERTACONAZOLE [Concomitant]
     Active Substance: SERTACONAZOLE
     Route: 067
     Dates: start: 20110712, end: 20110714
  14. DESLORATADINE. [Concomitant]
     Active Substance: DESLORATADINE
     Indication: RHINITIS ALLERGIC
     Route: 048
     Dates: start: 201008, end: 20130611
  15. HYDROXYPROPYL METHYLCELLULOSE [Concomitant]
     Indication: PRODUCT USED FOR UNKNOWN INDICATION
     Route: 047
     Dates: start: 20090911, end: 20130611
  16. FLUCONAZOLE. [Concomitant]
     Active Substance: FLUCONAZOLE
     Route: 048
     Dates: start: 20110905, end: 20110905
  17. TAFAMIDIS MEGLUMINE [Suspect]
     Active Substance: TAFAMIDIS MEGLUMINE
     Route: 065
     Dates: start: 20090306, end: 20100521
  18. ACETAMINOPHEN. [Concomitant]
     Active Substance: ACETAMINOPHEN
     Indication: PRODUCT USED FOR UNKNOWN INDICATION
     Route: 048
     Dates: start: 20120326, end: 20120327

REACTIONS (6)
  - White blood cells urine positive [Unknown]
  - Pruritus [Unknown]
  - Hepatic function abnormal [Recovered/Resolved]
  - Chromaturia [Unknown]
  - Hepatitis toxic [Unknown]
  - Fatigue [Unknown]

NARRATIVE: CASE EVENT DATE: 20130520
